FAERS Safety Report 9380072 (Version 1)
Quarter: 2013Q3

REPORT INFORMATION
  Report Type: Spontaneous
  Country: IN (occurrence: IN)
  Receive Date: 20130702
  Receipt Date: 20130702
  Transmission Date: 20140515
  Serious: Yes (Other)
  Sender: FDA-Public Use
  Company Number: IN-ROXANE LABORATORIES, INC.-2013-RO-01062RO

PATIENT
  Age: 61 Year
  Sex: Female

DRUGS (5)
  1. MORPHINE [Suspect]
     Indication: NEURALGIA
     Route: 048
  2. ACECLOFENAC [Suspect]
     Indication: NEURALGIA
     Dosage: 100 MG
  3. PARACETAMOL [Suspect]
     Indication: NEURALGIA
     Dosage: 1000 MG
  4. GABAPENTIN [Suspect]
     Indication: NEURALGIA
     Dosage: 1800 MG
  5. PREGABALIN [Suspect]
     Indication: NEURALGIA
     Dosage: 300 MG

REACTIONS (3)
  - Dizziness [Recovered/Resolved]
  - Sedation [Recovered/Resolved]
  - Neuralgia [Recovered/Resolved]
